FAERS Safety Report 9303359 (Version 1)
Quarter: 2013Q2

REPORT INFORMATION
  Report Type: Spontaneous
  Country: US (occurrence: US)
  Receive Date: 20130522
  Receipt Date: 20130522
  Transmission Date: 20140414
  Serious: Yes (Other)
  Sender: FDA-Public Use
  Company Number: US-ASTRAZENECA-2013SE33576

PATIENT
  Sex: Male

DRUGS (1)
  1. SYMBICORT [Suspect]
     Route: 055
     Dates: start: 20130501

REACTIONS (2)
  - Chest pain [Unknown]
  - Paraesthesia [Unknown]
